FAERS Safety Report 4326890-9 (Version None)
Quarter: 2004Q1

REPORT INFORMATION
  Report Type: 
  Country: None (occurrence: None)
  Receive Date: 20040330
  Receipt Date: 20030411
  Transmission Date: 20041129
  Serious: Yes (Hospitalization, Disabling, Other)
  Sender: FDA-Public Use
  Company Number: US-MERCK-0304USA01390

PATIENT
  Age: 45 Year
  Sex: Male
  Weight: 99 kg

DRUGS (6)
  1. ASPIRIN [Concomitant]
     Route: 065
  2. PLAVIX [Concomitant]
     Route: 065
     Dates: start: 19990409
  3. CARDIZEM [Concomitant]
     Route: 065
     Dates: start: 19990409
  4. MAXAIR [Concomitant]
     Route: 055
     Dates: start: 19990527
  5. VIOXX [Suspect]
     Indication: HEADACHE
     Route: 048
     Dates: start: 19990615, end: 20000628
  6. COUMADIN [Concomitant]
     Route: 065
     Dates: start: 19990615

REACTIONS (37)
  - ANGINA UNSTABLE [None]
  - ANXIETY [None]
  - BREATH SOUNDS DECREASED [None]
  - CARDIAC FAILURE CONGESTIVE [None]
  - CHEST PAIN [None]
  - CORONARY ARTERY DISEASE [None]
  - CORONARY ARTERY RESTENOSIS [None]
  - DEEP VEIN THROMBOSIS [None]
  - DEPRESSION [None]
  - DIABETES MELLITUS NON-INSULIN-DEPENDENT [None]
  - DILATATION ATRIAL [None]
  - DIZZINESS [None]
  - DYSPEPSIA [None]
  - DYSPNOEA EXERTIONAL [None]
  - GASTROOESOPHAGEAL REFLUX DISEASE [None]
  - HAEMATOMA [None]
  - HEPATIC CYST [None]
  - HIATUS HERNIA [None]
  - HYPERSENSITIVITY [None]
  - INSOMNIA [None]
  - INTERVERTEBRAL DISC DEGENERATION [None]
  - INTERVERTEBRAL DISC DISPLACEMENT [None]
  - LUNG NEOPLASM [None]
  - MYOCARDIAL INFARCTION [None]
  - NEPHROLITHIASIS [None]
  - PAIN IN EXTREMITY [None]
  - POST LAMINECTOMY SYNDROME [None]
  - POST PROCEDURAL PAIN [None]
  - POST THROMBOTIC SYNDROME [None]
  - PULMONARY VASCULAR DISORDER [None]
  - RADICULOPATHY [None]
  - SLEEP APNOEA SYNDROME [None]
  - STRESS SYMPTOMS [None]
  - SUICIDAL IDEATION [None]
  - TRICUSPID VALVE INCOMPETENCE [None]
  - UMBILICAL HERNIA [None]
  - WEIGHT DECREASED [None]
